FAERS Safety Report 13738894 (Version 2)
Quarter: 2018Q2

REPORT INFORMATION
  Report Type: Spontaneous
  Country: US (occurrence: US)
  Receive Date: 20170710
  Receipt Date: 20180627
  Transmission Date: 20180711
  Serious: Yes (Other)
  Sender: FDA-Public Use
  Company Number: US-SAOL THERAPEUTICS-2017SAO01010

PATIENT
  Sex: Male
  Weight: 132.88 kg

DRUGS (6)
  1. CLONIDINE. [Suspect]
     Active Substance: CLONIDINE
     Dosage: 231.34 ?G, \DAY
     Route: 037
  2. BUPIVACAINE. [Suspect]
     Active Substance: BUPIVACAINE
     Dosage: 0.876 MG, \DAY
     Route: 037
  3. HYDROMORPHONE [Suspect]
     Active Substance: HYDROMORPHONE
     Dosage: 18.338 ?G, \DAY
     Route: 037
  4. BACLOFEN. [Suspect]
     Active Substance: BACLOFEN
     Indication: POST LAMINECTOMY SYNDROME
  5. FENTANYL. [Suspect]
     Active Substance: FENTANYL
     Dosage: 46.268 ?G, \DAY
     Route: 037
  6. BACLOFEN. [Suspect]
     Active Substance: BACLOFEN
     Indication: PAIN
     Dosage: 231.34 ?G, \DAY
     Route: 037

REACTIONS (5)
  - Device failure [Unknown]
  - Drug ineffective for unapproved indication [Not Recovered/Not Resolved]
  - Pain [Not Recovered/Not Resolved]
  - Device infusion issue [Unknown]
  - Thrombosis [Unknown]

NARRATIVE: CASE EVENT DATE: 2007
